FAERS Safety Report 9816654 (Version 1)
Quarter: 2014Q1

REPORT INFORMATION
  Report Type: Spontaneous
  Country: US (occurrence: US)
  Receive Date: 20140114
  Receipt Date: 20140114
  Transmission Date: 20141002
  Serious: Yes (Other)
  Sender: FDA-Public Use
  Company Number: US-ENDO PHARMACEUTICALS INC.-PERC20130086

PATIENT
  Sex: Female

DRUGS (3)
  1. PERCOCET 10MG/325MG [Suspect]
     Indication: POST LAMINECTOMY SYNDROME
     Dosage: 10 MG/325 MG
     Route: 048
  2. PERCOCET 10MG/325MG [Suspect]
     Dosage: 40 MG/1300 MG
     Route: 048
  3. OXYCONTIN [Suspect]
     Indication: POST LAMINECTOMY SYNDROME
     Dosage: UNKNOWN
     Route: 048

REACTIONS (2)
  - Intentional overdose [Recovered/Resolved]
  - Drug abuse [Recovered/Resolved]
